FAERS Safety Report 4437782-9 (Version None)
Quarter: 2004Q3

REPORT INFORMATION
  Report Type: 
  Country: None (occurrence: None)
  Receive Date: 20040827
  Receipt Date: 20040814
  Transmission Date: 20050211
  Serious: Yes (Hospitalization)
  Sender: FDA-Public Use
  Company Number: 04P-062-0270769-00

PATIENT
  Age: 30 Year
  Sex: Female
  Weight: 65 kg

DRUGS (7)
  1. MERIDIA [Suspect]
     Indication: SUICIDE ATTEMPT
     Dosage: 315 MG, ONCE, PER ORAL
     Route: 048
     Dates: start: 20040814, end: 20040814
  2. ASPIRIN 500 [Suspect]
     Indication: SUICIDE ATTEMPT
     Dosage: 10000 MG, ONCE, PER ORAL
     Route: 048
     Dates: start: 20040814, end: 20040814
  3. FUROSEMID 40 [Suspect]
     Indication: SUICIDE ATTEMPT
     Dosage: 160 MG, ONCE, PER ORAL
     Route: 048
     Dates: start: 20040814, end: 20040814
  4. ALLOPURINOL [Suspect]
     Indication: SUICIDE ATTEMPT
     Dosage: 3000 MG, ONCE, PER ORAL
     Route: 048
     Dates: start: 20040814, end: 20040814
  5. DYAZIDE [Suspect]
     Indication: SUICIDE ATTEMPT
     Dosage: 10 TABLET, PER ORAL
     Route: 048
     Dates: start: 20040814, end: 20040814
  6. L-CARNITIN [Suspect]
     Indication: SUICIDE ATTEMPT
     Dosage: 10 TABLET, ONCE, PER ORAL
     Route: 048
     Dates: start: 20040814, end: 20040814
  7. ETHANOL [Suspect]
     Indication: SUICIDE ATTEMPT
     Dosage: PER ORAL
     Route: 048
     Dates: start: 20040814, end: 20040814

REACTIONS (5)
  - OVERDOSE [None]
  - SOPOR [None]
  - SUICIDE ATTEMPT [None]
  - TACHYCARDIA [None]
  - VOMITING [None]
